FAERS Safety Report 22346169 (Version 1)
Quarter: 2023Q2

REPORT INFORMATION
  Report Type: Spontaneous
  Country: US (occurrence: US)
  Receive Date: 20230519
  Receipt Date: 20230519
  Transmission Date: 20230722
  Serious: Yes (Life-Threatening, Other)
  Sender: FDA-Public Use
  Company Number: US-PFIZER INC-PV202300088195

PATIENT
  Age: 2 Year
  Sex: Female

DRUGS (2)
  1. BORTEZOMIB [Suspect]
     Active Substance: BORTEZOMIB
     Indication: Plasmapheresis
     Dosage: 1.3 MG/M2
  2. ISONIAZID [Concomitant]
     Active Substance: ISONIAZID
     Indication: Exposure to communicable disease
     Dosage: UNK

REACTIONS (3)
  - Thrombocytopenia [Unknown]
  - Pruritus [Unknown]
  - Neuropathy peripheral [Unknown]
